FAERS Safety Report 4265746-7 (Version None)
Quarter: 2004Q1

REPORT INFORMATION
  Report Type: 
  Country: None (occurrence: None)
  Receive Date: 20040107
  Receipt Date: 20031128
  Transmission Date: 20041129
  Serious: Yes (Hospitalization)
  Sender: FDA-Public Use
  Company Number: JP-ROCHE-352820

PATIENT
  Age: 60 Year
  Sex: Female
  Weight: 47.6 kg

DRUGS (6)
  1. PANALDINE [Suspect]
     Route: 048
     Dates: start: 20030115, end: 20031104
  2. NO DRUG [Concomitant]
     Indication: RHEUMATOID ARTHRITIS
     Route: 065
  3. PREDNISOLONE [Suspect]
     Indication: RHEUMATOID ARTHRITIS
     Route: 048
  4. RHEUMATREX [Concomitant]
  5. CYTOTEC [Concomitant]
     Dates: start: 20031006
  6. PENFILL R [Concomitant]

REACTIONS (7)
  - BLOOD PRESSURE INCREASED [None]
  - HAEMATEMESIS [None]
  - HAEMOPHILUS INFECTION [None]
  - HAEMOPTYSIS [None]
  - HEART RATE INCREASED [None]
  - IMMUNOSUPPRESSION [None]
  - PNEUMONIA BACTERIAL [None]
